FAERS Safety Report 16793268 (Version 9)
Quarter: 2021Q2

REPORT INFORMATION
  Report Type: Other
  Country: US (occurrence: US)
  Receive Date: 20190911
  Receipt Date: 20210603
  Transmission Date: 20210716
  Serious: Yes (Other)
  Sender: FDA-Public Use
  Company Number: US-ROCHE-2355291

PATIENT
  Age: 30 Year
  Sex: Female
  Weight: 70.37 kg

DRUGS (4)
  1. OCREVUS [Suspect]
     Active Substance: OCRELIZUMAB
     Route: 042
     Dates: end: 201903
  2. OCREVUS [Suspect]
     Active Substance: OCRELIZUMAB
     Route: 042
     Dates: start: 202007
  3. OCREVUS [Suspect]
     Active Substance: OCRELIZUMAB
     Indication: RELAPSING-REMITTING MULTIPLE SCLEROSIS
     Dosage: DATE OF TREATMENT: 12/MAR/2018, 08/JAN/2021, 09/JUL/2020, 12/MAR/2019, 10/SEP/2018, 26/FEB/2018
     Route: 042
     Dates: start: 20180226, end: 201903
  4. OCREVUS [Suspect]
     Active Substance: OCRELIZUMAB
     Route: 042
     Dates: start: 20180219

REACTIONS (8)
  - Intermenstrual bleeding [Recovered/Resolved]
  - Malaise [Unknown]
  - Maternal exposure before pregnancy [Unknown]
  - Ligament sprain [Not Recovered/Not Resolved]
  - Immunodeficiency [Unknown]
  - Multiple sclerosis [Unknown]
  - B-lymphocyte count decreased [Not Recovered/Not Resolved]
  - Illness [Unknown]

NARRATIVE: CASE EVENT DATE: 202005
